FAERS Safety Report 4659106-4 (Version None)
Quarter: 2005Q2

REPORT INFORMATION
  Report Type: 
  Country: None (occurrence: None)
  Receive Date: 20050509
  Receipt Date: 20050428
  Transmission Date: 20051028
  Serious: Yes (Other)
  Sender: FDA-Public Use
  Company Number: 200510447BVD

PATIENT

DRUGS (1)
  1. AVALOX            (MOXIFLOXACIN HYDROCHLORIDE) [Suspect]

REACTIONS (4)
  - ACUTE ABDOMEN [None]
  - FAECES DISCOLOURED [None]
  - GENERAL PHYSICAL HEALTH DETERIORATION [None]
  - JAUNDICE [None]
